FAERS Safety Report 10014479 (Version 1)
Quarter: 2014Q1

REPORT INFORMATION
  Report Type: Spontaneous
  Country: US (occurrence: US)
  Receive Date: 20140317
  Receipt Date: 20140317
  Transmission Date: 20141002
  Serious: Yes (Other)
  Sender: FDA-Public Use
  Company Number: US-BAYER-2014-039534

PATIENT
  Sex: Male

DRUGS (3)
  1. LEVITRA [Suspect]
  2. VIAGRA [Concomitant]
  3. CIALIS [Concomitant]

REACTIONS (1)
  - Knee arthroplasty [None]
